FAERS Safety Report 10248484 (Version 3)
Quarter: 2014Q3

REPORT INFORMATION
  Report Type: Spontaneous
  Country: IT (occurrence: IT)
  Receive Date: 20140620
  Receipt Date: 20140724
  Transmission Date: 20150326
  Serious: Yes (Other)
  Sender: FDA-Public Use
  Company Number: IT-BRISTOL-MYERS SQUIBB COMPANY-21013685

PATIENT
  Age: 89 Year
  Sex: Male

DRUGS (7)
  1. BISOPROLOL HEMIFUMARATE [Concomitant]
     Active Substance: BISOPROLOL
  2. LASIX [Concomitant]
     Active Substance: FUROSEMIDE
     Route: 048
  3. LANOXIN [Concomitant]
     Active Substance: DIGOXIN
     Dosage: 1 DF= 1 UNIT;0.125 MG TABS
     Route: 048
  4. FINASTERIDE. [Concomitant]
     Active Substance: FINASTERIDE
     Route: 048
  5. CLEXANE [Concomitant]
     Active Substance: ENOXAPARIN SODIUM
     Dosage: 1 DF=2 UNITS;6000 IU AXA/0.6ML INJECTION SOLUTION
     Route: 058
  6. COUMADIN [Suspect]
     Active Substance: WARFARIN SODIUM
     Indication: CARDIAC PACEMAKER INSERTION
     Dosage: 1 DF=1 UNIT
     Route: 048
     Dates: start: 20140101
  7. MINIAS [Concomitant]
     Active Substance: LORMETAZEPAM
     Dosage: 1 DF=2.5MG/ML;
     Route: 048

REACTIONS (7)
  - Overdose [Unknown]
  - Abdominal distension [Recovered/Resolved]
  - Swelling face [Recovered/Resolved]
  - Vertigo [Recovered/Resolved]
  - Conjunctival haemorrhage [Recovered/Resolved]
  - Headache [Recovered/Resolved]
  - Confusional state [Recovered/Resolved]

NARRATIVE: CASE EVENT DATE: 20140527
